FAERS Safety Report 6859198-8 (Version None)
Quarter: 2010Q3

REPORT INFORMATION
  Report Type: 
  Country: None (occurrence: None)
  Receive Date: 20100719
  Receipt Date: 20080222
  Transmission Date: 20110219
  Serious: No
  Sender: FDA-Public Use
  Company Number: US-PFIZER INC-2008017893

PATIENT
  Sex: Female
  Weight: 68 kg

DRUGS (9)
  1. CHANTIX [Suspect]
     Indication: SMOKING CESSATION THERAPY
     Route: 048
     Dates: start: 20080208
  2. ESTROGENS [Concomitant]
  3. NEURONTIN [Concomitant]
  4. FLEXERIL [Concomitant]
  5. VICODIN [Concomitant]
     Indication: PAIN
  6. HYDROMORPHONE [Concomitant]
     Dosage: 1 EVERY 46 HOURS
  7. FENTANYL [Concomitant]
  8. LISINOPRIL [Concomitant]
  9. MONTELUKAST SODIUM [Concomitant]
     Indication: HYPERSENSITIVITY

REACTIONS (1)
  - NAUSEA [None]
